FAERS Safety Report 14974725 (Version 1)
Quarter: 2018Q2

REPORT INFORMATION
  Report Type: Spontaneous
  Country: GB (occurrence: GB)
  Receive Date: 20180605
  Receipt Date: 20180605
  Transmission Date: 20180711
  Serious: Yes (Other)
  Sender: FDA-Public Use
  Company Number: GB-PFIZER INC-2018220141

PATIENT
  Age: 72 Year
  Sex: Female
  Weight: 79.37 kg

DRUGS (5)
  1. SOLIFENACIN [Concomitant]
     Active Substance: SOLIFENACIN
     Dosage: 5 MG, 1X/DAY
     Dates: start: 20180312
  2. ATORVASTATIN CALCIUM. [Suspect]
     Active Substance: ATORVASTATIN CALCIUM
     Dosage: 20 MG, 1X/DAY (EVERY MORNING)
  3. HYDROXOCOBALAMIN [Concomitant]
     Active Substance: HYDROXOCOBALAMIN
     Dosage: UNK (IMMEDIATELY. 1MG/1ML)
     Dates: start: 20180403
  4. CLENIL MODULITE [Concomitant]
     Active Substance: BECLOMETHASONE DIPROPIONATE
     Dosage: 400 UG, 1X/DAY (NOTES FOR DISPENSER: THIS SHOULD LAST 3 MONTHS, PLEASE CONFIRM TAKING CORRECTLY)
     Dates: start: 20180406
  5. MIRABEGRON [Concomitant]
     Active Substance: MIRABEGRON
     Dosage: 50 MG, 1X/DAY
     Dates: start: 20180406

REACTIONS (3)
  - Insomnia [Recovered/Resolved]
  - Condition aggravated [Recovered/Resolved]
  - Meniere^s disease [Recovered/Resolved]

NARRATIVE: CASE EVENT DATE: 20171113
